FAERS Safety Report 5267558-4 (Version None)
Quarter: 2007Q1

REPORT INFORMATION
  Report Type: 
  Country: None (occurrence: None)
  Receive Date: 20070316
  Receipt Date: 20070306
  Transmission Date: 20070707
  Serious: Yes (Hospitalization)
  Sender: FDA-Public Use
  Company Number: US-AMGEN-US213895

PATIENT
  Sex: Male

DRUGS (4)
  1. NEULASTA [Suspect]
     Indication: CHEMOTHERAPY
     Dates: start: 20070122, end: 20070122
  2. THYROID TAB [Concomitant]
  3. NEXIUM [Concomitant]
  4. DACOGEN [Concomitant]

REACTIONS (8)
  - BLOOD PRESSURE DECREASED [None]
  - BONE PAIN [None]
  - CHEST PAIN [None]
  - CHILLS [None]
  - DYSPNOEA [None]
  - HYPERHIDROSIS [None]
  - OEDEMA [None]
  - WHITE BLOOD CELL COUNT INCREASED [None]
